FAERS Safety Report 17427995 (Version 2)
Quarter: 2020Q1

REPORT INFORMATION
  Report Type: Spontaneous
  Country: PT (occurrence: PT)
  Receive Date: 20200218
  Receipt Date: 20200225
  Transmission Date: 20200409
  Serious: Yes (Death, Life-Threatening, Hospitalization, Other)
  Sender: FDA-Public Use
  Company Number: NVSC2020PT042791

PATIENT
  Age: 70 Year
  Sex: Male

DRUGS (4)
  1. ALLOPURINOL. [Suspect]
     Active Substance: ALLOPURINOL
     Indication: PRODUCT USED FOR UNKNOWN INDICATION
     Dosage: UNK
     Route: 065
  2. GENTAMICIN. [Suspect]
     Active Substance: GENTAMICIN
     Indication: ENDOCARDITIS
     Dosage: UNK
     Route: 065
  3. CEFTRIAXONE. [Suspect]
     Active Substance: CEFTRIAXONE
     Indication: SEPTIC SHOCK
     Dosage: UNK
     Route: 065
  4. LINEZOLID. [Suspect]
     Active Substance: LINEZOLID
     Indication: ENDOCARDITIS
     Dosage: UNK
     Route: 065

REACTIONS (11)
  - Enterococcal infection [Unknown]
  - Chronic kidney disease [Unknown]
  - Anaemia [Unknown]
  - Drug ineffective [Fatal]
  - Septic shock [Unknown]
  - Necrosis [Unknown]
  - Cardiac arrest [Unknown]
  - Ischaemia [Unknown]
  - Thrombocytopenia [Unknown]
  - Rhabdomyolysis [Unknown]
  - Stevens-Johnson syndrome [Fatal]
